FAERS Safety Report 8297917-7 (Version None)
Quarter: 2012Q2

REPORT INFORMATION
  Report Type: 
  Country: None (occurrence: None)
  Receive Date: 20120419
  Receipt Date: 20120418
  Transmission Date: 20120825
  Serious: Yes (Hospitalization)
  Sender: FDA-Public Use
  Company Number: JP-BRISTOL-MYERS SQUIBB COMPANY-15861511

PATIENT
  Age: 52 Year
  Sex: Female

DRUGS (1)
  1. KENACORT [Suspect]
     Indication: SINUSITIS
     Dosage: 1DF= 40 MG/1 ML
     Route: 030
     Dates: start: 20111101, end: 20111101

REACTIONS (4)
  - VISION BLURRED [None]
  - RETINAL ARTERY OCCLUSION [None]
  - UTERINE DISORDER [None]
  - ANAPHYLACTOID REACTION [None]
